FAERS Safety Report 13562319 (Version 1)
Quarter: 2017Q2

REPORT INFORMATION
  Report Type: Spontaneous
  Country: AU (occurrence: AU)
  Receive Date: 20170519
  Receipt Date: 20170519
  Transmission Date: 20170830
  Serious: Yes (Hospitalization, Other)
  Sender: FDA-Public Use
  Company Number: AU-APOTEX-2017AP012228

PATIENT
  Age: 50 Year
  Sex: Male

DRUGS (2)
  1. APO-ARIPIPRAZOLE [Suspect]
     Active Substance: ARIPIPRAZOLE
     Indication: SCHIZOPHRENIA
     Dosage: 10 MG, QD
     Route: 065
  2. RISPERIDONE. [Suspect]
     Active Substance: RISPERIDONE
     Indication: SCHIZOPHRENIA
     Dosage: UNK
     Route: 065
     Dates: end: 2012

REACTIONS (4)
  - Overdose [Unknown]
  - Suicide attempt [Unknown]
  - Priapism [Unknown]
  - Gambling disorder [Unknown]

NARRATIVE: CASE EVENT DATE: 2012
